FAERS Safety Report 16663042 (Version 1)
Quarter: 2019Q3

REPORT INFORMATION
  Report Type: Report from Study
  Country: US (occurrence: US)
  Receive Date: 20190802
  Receipt Date: 20190802
  Transmission Date: 20191004
  Serious: No
  Sender: FDA-Public Use
  Company Number: US-EXELIXIS-CABO-19020853

PATIENT
  Sex: Male

DRUGS (18)
  1. ELIQUIS [Concomitant]
     Active Substance: APIXABAN
  2. VIAGRA [Concomitant]
     Active Substance: SILDENAFIL CITRATE
  3. ROCALTROL [Concomitant]
     Active Substance: CALCITRIOL
  4. PANTOPRAZOLE SODIUM. [Concomitant]
     Active Substance: PANTOPRAZOLE SODIUM
  5. ACETAMINOPHEN. [Concomitant]
     Active Substance: ACETAMINOPHEN
  6. AMLODIPINE [Concomitant]
     Active Substance: AMLODIPINE BESYLATE
  7. FERROUS SULFATE. [Concomitant]
     Active Substance: FERROUS SULFATE
  8. MULTIVITAMINS, COMBINATIONS [Concomitant]
     Active Substance: VITAMINS
  9. LOSARTAN. [Concomitant]
     Active Substance: LOSARTAN
  10. ZETIA [Concomitant]
     Active Substance: EZETIMIBE
  11. LANTUS [Concomitant]
     Active Substance: INSULIN GLARGINE
  12. CABOMETYX [Suspect]
     Active Substance: CABOZANTINIB S-MALATE
     Indication: RENAL CANCER
     Dosage: 60 MG, QD
     Route: 048
     Dates: start: 20190302
  13. CABOMETYX [Suspect]
     Active Substance: CABOZANTINIB S-MALATE
     Indication: METASTASES TO LUNG
  14. ALLOPURINOL. [Concomitant]
     Active Substance: ALLOPURINOL
  15. ASCORBIC ACID. [Concomitant]
     Active Substance: ASCORBIC ACID
  16. DOCUSATE SODIUM. [Concomitant]
     Active Substance: DOCUSATE SODIUM
  17. NOVOLOG [Concomitant]
     Active Substance: INSULIN ASPART
  18. HYDROCHLOROTHIAZIDE. [Concomitant]
     Active Substance: HYDROCHLOROTHIAZIDE

REACTIONS (2)
  - Genital ulceration [Unknown]
  - Pain in extremity [Unknown]
